FAERS Safety Report 7920158-7 (Version None)
Quarter: 2011Q4

REPORT INFORMATION
  Report Type: 
  Country: None (occurrence: None)
  Receive Date: 20111117
  Receipt Date: 20111107
  Transmission Date: 20120403
  Serious: Yes (Hospitalization, Other)
  Sender: FDA-Public Use
  Company Number: US-BAYER-2011-048910

PATIENT
  Age: 23 Year
  Sex: Female
  Weight: 45.351 kg

DRUGS (9)
  1. AVELOX [Concomitant]
     Dosage: 400 MG, UNK
     Route: 048
  2. ENALAPRIL MALEATE [Concomitant]
     Dosage: 10 MG, UNK
     Route: 048
  3. ANTIBIOTICS [Concomitant]
  4. HYDROMORPHONE HCL [Concomitant]
     Dosage: 4 MG, UNK
     Route: 048
  5. YAZ [Suspect]
     Indication: PREMENSTRUAL SYNDROME
     Dosage: UNK
     Route: 048
     Dates: start: 20061201, end: 20070701
  6. DILAUDID [Concomitant]
  7. FOLIC ACID [Concomitant]
     Dosage: 1 MG, UNK
     Route: 048
  8. RED BLOOD CELLS [Concomitant]
  9. MEDROXYPROGESTERONE [Concomitant]
     Dosage: 15 MG, UNK
     Route: 048

REACTIONS (3)
  - DEEP VEIN THROMBOSIS [None]
  - THROMBOSIS [None]
  - PAIN [None]
